FAERS Safety Report 9567080 (Version 1)
Quarter: 2013Q3

REPORT INFORMATION
  Report Type: Spontaneous
  Country: US (occurrence: US)
  Receive Date: 20130930
  Receipt Date: 20130930
  Transmission Date: 20140515
  Serious: No
  Sender: FDA-Public Use
  Company Number: US-AMGEN-USASP2012061456

PATIENT
  Age: 48 Year
  Sex: Female

DRUGS (1)
  1. ENBREL [Suspect]
     Indication: RHEUMATOID ARTHRITIS
     Dosage: WEEKLY
     Dates: start: 20120621, end: 20120907

REACTIONS (3)
  - Injection site reaction [Recovered/Resolved]
  - Injection site urticaria [Recovered/Resolved]
  - Injection site warmth [Recovered/Resolved]
